FAERS Safety Report 9689097 (Version 1)
Quarter: 2013Q4

REPORT INFORMATION
  Report Type: Spontaneous
  Country: US (occurrence: US)
  Receive Date: 20131114
  Receipt Date: 20131114
  Transmission Date: 20140711
  Serious: Yes (Hospitalization)
  Sender: FDA-Public Use
  Company Number: US-UCBSA-102970

PATIENT
  Age: 52 Year
  Sex: Female

DRUGS (23)
  1. CIMZIA [Suspect]
  2. HUMIRA [Concomitant]
     Indication: RHEUMATOID ARTHRITIS
     Dates: start: 201306
  3. HUMIRA [Concomitant]
     Indication: CROHN^S DISEASE
     Dates: start: 201306
  4. HUMIRA [Concomitant]
     Indication: RHEUMATOID ARTHRITIS
     Dates: start: 201310
  5. HUMIRA [Concomitant]
     Indication: CROHN^S DISEASE
     Dates: start: 201310
  6. PRED [Concomitant]
     Indication: CROHN^S DISEASE
  7. PRED [Concomitant]
     Indication: RHEUMATOID ARTHRITIS
  8. TYSBRI [Concomitant]
  9. TYSBRI [Concomitant]
  10. REMICADE [Concomitant]
  11. DICYCLOMINE [Concomitant]
     Indication: RHEUMATOID ARTHRITIS
  12. DICYCLOMINE [Concomitant]
     Indication: CROHN^S DISEASE
  13. DIPHENOXYLATE/ATROPINE [Concomitant]
     Indication: CROHN^S DISEASE
  14. DIPHENOXYLATE/ATROPINE [Concomitant]
     Indication: RHEUMATOID ARTHRITIS
  15. ONDANSETRON [Concomitant]
     Indication: CROHN^S DISEASE
  16. ONDANSETRON [Concomitant]
     Indication: RHEUMATOID ARTHRITIS
  17. ETOPROLOL [Concomitant]
     Indication: HYPERTENSION
  18. AMLODIPINE [Concomitant]
     Indication: HYPERTENSION
  19. TRIAMTERONE [Concomitant]
     Indication: HYPERTENSION
  20. CLONAZEPAM [Concomitant]
     Indication: MUSCULAR DYSTROPHY
  21. CARBAMAZEPINE [Concomitant]
     Indication: MUSCULAR DYSTROPHY
  22. B-12 [Concomitant]
     Indication: MUSCULAR DYSTROPHY
  23. VIT D [Concomitant]
     Indication: MUSCULAR DYSTROPHY
     Dosage: DOSE: 50000 IU (M-W-F)

REACTIONS (7)
  - Clostridium difficile infection [Recovering/Resolving]
  - Crohn^s disease [Unknown]
  - Malaise [Recovering/Resolving]
  - Abscess [Unknown]
  - Fistula [Unknown]
  - Animal bite [Recovering/Resolving]
  - Drug ineffective [Unknown]
